FAERS Safety Report 10447404 (Version 2)
Quarter: 2014Q3

REPORT INFORMATION
  Report Type: Spontaneous
  Country: US (occurrence: US)
  Receive Date: 20140911
  Receipt Date: 20140911
  Transmission Date: 20150326
  Serious: No
  Sender: FDA-Public Use
  Company Number: US-BEH-2013034505

PATIENT
  Sex: Male

DRUGS (2)
  1. ZEMAIRA [Suspect]
     Active Substance: .ALPHA.1-PROTEINASE INHIBITOR HUMAN
  2. ZEMAIRA [Suspect]
     Active Substance: .ALPHA.1-PROTEINASE INHIBITOR HUMAN
     Indication: ALPHA-1 ANTI-TRYPSIN DEFICIENCY
     Route: 042
     Dates: start: 20130116

REACTIONS (7)
  - Infusion site warmth [Unknown]
  - Joint range of motion decreased [Unknown]
  - Infusion site swelling [Unknown]
  - Swelling [Unknown]
  - Respiratory tract congestion [Unknown]
  - Infusion site erythema [Unknown]
  - Malaise [Unknown]

NARRATIVE: CASE EVENT DATE: 2013
